FAERS Safety Report 9782054 (Version 1)
Quarter: 2013Q4

REPORT INFORMATION
  Report Type: Spontaneous
  Country: RU (occurrence: RU)
  Receive Date: 20131226
  Receipt Date: 20131226
  Transmission Date: 20140711
  Serious: Yes (Disabling)
  Sender: FDA-Public Use
  Company Number: RU-ROCHE-1325784

PATIENT
  Age: 65 Year
  Sex: Female

DRUGS (2)
  1. LUCENTIS [Suspect]
     Indication: PRODUCT USED FOR UNKNOWN INDICATION
     Route: 065
  2. ENALAPRIL [Concomitant]
     Route: 065

REACTIONS (1)
  - Retinal injury [Not Recovered/Not Resolved]
